FAERS Safety Report 6036672-8 (Version None)
Quarter: 2009Q1

REPORT INFORMATION
  Report Type: 
  Country: None (occurrence: None)
  Receive Date: 20090114
  Receipt Date: 20090108
  Transmission Date: 20090719
  Serious: Yes (Other)
  Sender: FDA-Public Use
  Company Number: US-BIOGENIDEC-2008BI027687

PATIENT
  Age: 41 Year
  Sex: Female

DRUGS (1)
  1. TYSABRI [Suspect]
     Indication: MULTIPLE SCLEROSIS
     Route: 042
     Dates: start: 20080617

REACTIONS (8)
  - ATAXIA [None]
  - COMPLEX PARTIAL SEIZURES [None]
  - CONVULSION [None]
  - FALL [None]
  - MOBILITY DECREASED [None]
  - PARTIAL SEIZURES [None]
  - STATUS EPILEPTICUS [None]
  - TREMOR [None]
